FAERS Safety Report 5142580-7 (Version None)
Quarter: 2006Q4

REPORT INFORMATION
  Report Type: 
  Country: None (occurrence: None)
  Receive Date: 20061027
  Receipt Date: 20061010
  Transmission Date: 20070319
  Serious: No
  Sender: FDA-Public Use
  Company Number: US200608006398

PATIENT
  Sex: Male

DRUGS (2)
  1. XIGRIS [Suspect]
     Indication: SEPSIS
     Dosage: SEE IMAGE
     Route: 042
  2. VASOPRESSIN AND ANALOGUES [Concomitant]

REACTIONS (1)
  - NO ADVERSE DRUG EFFECT [None]
